APPROVED DRUG PRODUCT: DILTIAZEM HYDROCHLORIDE
Active Ingredient: DILTIAZEM HYDROCHLORIDE
Strength: 5MG/ML
Dosage Form/Route: INJECTABLE;INJECTION
Application: A075106 | Product #001
Applicant: HOSPIRA INC
Approved: Apr 29, 1999 | RLD: No | RS: No | Type: DISCN